FAERS Safety Report 9112974 (Version 1)
Quarter: 2013Q1

REPORT INFORMATION
  Report Type: Spontaneous
  Country: US (occurrence: US)
  Receive Date: 20130211
  Receipt Date: 20130211
  Transmission Date: 20140127
  Serious: Yes (Death)
  Sender: FDA-Public Use
  Company Number: US-PERRIGO-13US001183

PATIENT
  Age: 63 Year
  Sex: Female
  Weight: 113 kg

DRUGS (4)
  1. CLINDAMYCIN PALMITATE HYDROCHLORIDE [Suspect]
     Indication: STAPHYLOCOCCAL INFECTION
     Dosage: UNKNOWN, UNKNOWN
     Route: 048
  2. LEVOTHYROXINE [Concomitant]
     Indication: HYPOTHYROIDISM
     Dosage: UNKNOWN, UNKNOWN
     Route: 048
  3. ATORVASTATIN [Concomitant]
     Indication: DYSLIPIDAEMIA
     Dosage: UNKNOWN, UNKNOWN
     Route: 048
  4. HYDROCODONE W/ACETAMINOPHEN [Concomitant]
     Indication: PRODUCT USED FOR UNKNOWN INDICATION
     Dosage: UNKNOWN, UNKNOWN
     Route: 048

REACTIONS (13)
  - Drug reaction with eosinophilia and systemic symptoms [Fatal]
  - Renal failure acute [Fatal]
  - Skin exfoliation [Fatal]
  - Pancreatitis [Fatal]
  - Hepatic failure [Fatal]
  - Respiratory failure [Fatal]
  - Hypotension [Fatal]
  - Rash [Fatal]
  - Nausea [Fatal]
  - Vomiting [Fatal]
  - Urine output decreased [Fatal]
  - Jaundice [Fatal]
  - Multi-organ failure [Fatal]
